FAERS Safety Report 6912759-X (Version None)
Quarter: 2010Q3

REPORT INFORMATION
  Report Type: 
  Country: None (occurrence: None)
  Receive Date: 20100806
  Receipt Date: 20081122
  Transmission Date: 20110219
  Serious: No
  Sender: FDA-Public Use
  Company Number: US-PFIZER INC-2008075239

PATIENT
  Sex: Male

DRUGS (2)
  1. GLUCOTROL [Suspect]
  2. GLUCOPHAGE [Suspect]

REACTIONS (3)
  - BLOOD GLUCOSE DECREASED [None]
  - DIARRHOEA [None]
  - DRUG INEFFECTIVE [None]
